FAERS Safety Report 22036863 (Version 1)
Quarter: 2023Q1

REPORT INFORMATION
  Report Type: Spontaneous
  Country: DE (occurrence: DE)
  Receive Date: 20230225
  Receipt Date: 20230225
  Transmission Date: 20230418
  Serious: Yes (Other)
  Sender: FDA-Public Use
  Company Number: DE-AMGEN-DEUSP2022220663

PATIENT
  Sex: Female

DRUGS (1)
  1. LUMAKRAS [Suspect]
     Active Substance: SOTORASIB
     Indication: Product used for unknown indication
     Dosage: UNK
     Route: 065
     Dates: start: 202202

REACTIONS (1)
  - Tumour marker increased [Unknown]

NARRATIVE: CASE EVENT DATE: 20221219
